FAERS Safety Report 5391580-0 (Version None)
Quarter: 2007Q3

REPORT INFORMATION
  Report Type: 
  Country: None (occurrence: None)
  Receive Date: 20070719
  Receipt Date: 20070710
  Transmission Date: 20080115
  Serious: Yes (Hospitalization, Other)
  Sender: FDA-Public Use
  Company Number: FR-PFIZER INC-2007041741

PATIENT
  Sex: Female
  Weight: 54 kg

DRUGS (4)
  1. CHAMPIX [Suspect]
     Indication: SMOKING CESSATION THERAPY
     Route: 048
     Dates: start: 20070215, end: 20070501
  2. CITALOPRAM [Concomitant]
  3. CLONAZEPAM [Concomitant]
  4. MEPRONIZINE [Concomitant]

REACTIONS (6)
  - ALCOHOL USE [None]
  - ANXIETY [None]
  - DEPRESSION [None]
  - DIARRHOEA [None]
  - HEADACHE [None]
  - SUICIDE ATTEMPT [None]
